FAERS Safety Report 6443127-5 (Version None)
Quarter: 2009Q4

REPORT INFORMATION
  Report Type: 
  Country: None (occurrence: None)
  Receive Date: 20091117
  Receipt Date: 20091112
  Transmission Date: 20100525
  Serious: Yes (Other)
  Sender: FDA-Public Use
  Company Number: A0813481A

PATIENT
  Sex: Male
  Weight: 18 kg

DRUGS (3)
  1. SERETIDE [Suspect]
     Indication: ASTHMA
     Dosage: 2PUFF TWICE PER DAY
     Route: 055
     Dates: start: 20070101
  2. BEROTEC [Concomitant]
     Indication: ASTHMA
  3. SINGULAIR [Concomitant]
     Indication: ASTHMA

REACTIONS (4)
  - ASTHMATIC CRISIS [None]
  - COUGH [None]
  - FATIGUE [None]
  - PRODUCT QUALITY ISSUE [None]
